FAERS Safety Report 17326011 (Version 1)
Quarter: 2020Q1

REPORT INFORMATION
  Report Type: Spontaneous
  Country: US (occurrence: US)
  Receive Date: 20200127
  Receipt Date: 20200127
  Transmission Date: 20200409
  Serious: No
  Sender: FDA-Public Use
  Company Number: US-VERTEX PHARMACEUTICALS-2020-001074

PATIENT
  Age: 22 Year
  Sex: Female
  Weight: 49 kg

DRUGS (1)
  1. TRIKAFTA [Suspect]
     Active Substance: ELEXACAFTOR\IVACAFTOR\TEZACAFTOR
     Indication: CYSTIC FIBROSIS
     Dosage: 2 ORANGE TABLETS (100/150/75) AM AND 1 BLUE TABLETS (150MG) PM
     Route: 048
     Dates: start: 20200110

REACTIONS (2)
  - Headache [Unknown]
  - Productive cough [Unknown]

NARRATIVE: CASE EVENT DATE: 202001
